FAERS Safety Report 24078264 (Version 3)
Quarter: 2024Q3

REPORT INFORMATION
  Report Type: Spontaneous
  Country: US (occurrence: US)
  Receive Date: 20240711
  Receipt Date: 20240912
  Transmission Date: 20241016
  Serious: Yes (Hospitalization, Other)
  Sender: PFIZER
  Company Number: US-PFIZER INC-202400209565

PATIENT
  Age: 16 Year
  Sex: Male
  Weight: 67.13 kg

DRUGS (3)
  1. OXBRYTA [Suspect]
     Active Substance: VOXELOTOR
     Indication: Sickle cell anaemia
     Dosage: 1500 MG AT BEDTIME
     Dates: start: 202404
  2. HYDROXYUREA [Concomitant]
     Active Substance: HYDROXYUREA
     Dosage: 1500 MG, DAILY
  3. HYDROXYUREA [Concomitant]
     Active Substance: HYDROXYUREA
     Dosage: (500 MILGRAM CAPSULE, 15 MILLIGRAM AT NIGHT.)

REACTIONS (6)
  - Hip arthroplasty [Unknown]
  - Constipation [Unknown]
  - Decreased appetite [Not Recovered/Not Resolved]
  - Weight decreased [Not Recovered/Not Resolved]
  - Diarrhoea [Unknown]
  - Product dose omission issue [Unknown]

NARRATIVE: CASE EVENT DATE: 20240601
